FAERS Safety Report 15541130 (Version 1)
Quarter: 2018Q4

REPORT INFORMATION
  Report Type: Other
  Country: ES (occurrence: ES)
  Receive Date: 20181023
  Receipt Date: 20181023
  Transmission Date: 20190205
  Serious: Yes (Other)
  Sender: FDA-Public Use
  Company Number: ES-APOTEX-2018AP022966

PATIENT
  Age: 42 Year
  Sex: Female

DRUGS (3)
  1. CLARITROMICINA [Interacting]
     Active Substance: CLARITHROMYCIN
     Indication: HELICOBACTER INFECTION
     Dosage: 1 G, Q.12H
     Route: 048
     Dates: end: 20180122
  2. AMOXICILINA                        /00249601/ [Concomitant]
     Active Substance: AMOXICILLIN
     Indication: HELICOBACTER INFECTION
     Dosage: 1 G, Q.12H
     Route: 048
     Dates: start: 20180120, end: 20180122
  3. OMEPRAZOLE. [Suspect]
     Active Substance: OMEPRAZOLE
     Indication: HELICOBACTER INFECTION
     Dosage: 20 MG, Q.12H
     Route: 048
     Dates: start: 20180120, end: 20180122

REACTIONS (2)
  - Psychotic disorder [Recovered/Resolved]
  - Hallucination, visual [Recovering/Resolving]

NARRATIVE: CASE EVENT DATE: 20180120
